FAERS Safety Report 17934649 (Version 1)
Quarter: 2020Q2

REPORT INFORMATION
  Report Type: Spontaneous
  Country: US (occurrence: US)
  Receive Date: 20200623
  Receipt Date: 20200623
  Transmission Date: 20200714
  Serious: No
  Sender: FDA-Public Use
  Company Number: None

PATIENT
  Age: 73 Year
  Sex: Female

DRUGS (1)
  1. IBRANCE [Suspect]
     Active Substance: PALBOCICLIB
     Indication: BREAST CANCER
     Dosage: DAILY FOR 21 DA  ORAL
     Route: 048
     Dates: start: 20200125, end: 20200620

REACTIONS (2)
  - Neoplasm [None]
  - Treatment failure [None]

NARRATIVE: CASE EVENT DATE: 20200622
